FAERS Safety Report 11038010 (Version 1)
Quarter: 2015Q2

REPORT INFORMATION
  Report Type: Spontaneous
  Country: US (occurrence: US)
  Receive Date: 20150416
  Receipt Date: 20150416
  Transmission Date: 20150821
  Serious: Yes (Hospitalization)
  Sender: FDA-Public Use
  Company Number: US-GLENMARK GENERICS INC.-2015GMK015830

PATIENT
  Age: 67 Year
  Sex: Male

DRUGS (2)
  1. ATOVAQUONE/PROGUANIL TABLETS [Suspect]
     Active Substance: ATOVAQUONE\PROGUANIL
     Indication: CEREBRAL MALARIA
     Dosage: UNK
  2. ARTESUNATE [Concomitant]
     Active Substance: ARTESUNATE
     Indication: CEREBRAL MALARIA
     Dosage: UNK
     Route: 051

REACTIONS (4)
  - Transaminases increased [Unknown]
  - Thrombocytopenia [Unknown]
  - Mental status changes [Unknown]
  - Confusional state [Unknown]
